FAERS Safety Report 8793374 (Version 3)
Quarter: 2012Q4

REPORT INFORMATION
  Report Type: 
  Country: JP (occurrence: JP)
  Receive Date: 20120918
  Receipt Date: 20121024
  Transmission Date: 20130627
  Serious: Yes (Hospitalization)
  Sender: FDA-Public Use
  Company Number: JP-UCBSA-065692

PATIENT
  Age: 9 Year
  Sex: Male
  Weight: 27.5 kg

DRUGS (15)
  1. E KEPPRA [Suspect]
     Indication: EPILEPSY
     Route: 048
     Dates: start: 20110806, end: 20110812
  2. E KEPPRA [Suspect]
     Indication: EPILEPSY
     Route: 048
     Dates: start: 20110723, end: 20110805
  3. E KEPPRA [Suspect]
     Indication: EPILEPSY
     Dosage: DAILY DOSE: 250 MG; MORNING AND EVENING
     Route: 048
     Dates: start: 20110624, end: 20110722
  4. E KEPPRA [Suspect]
     Indication: EPILEPSY
     Dosage: 4.6 MG/KG (CRUSHED AT NIGHT)
     Route: 048
     Dates: start: 20110610, end: 20110623
  5. EXCEGRAN [Concomitant]
     Indication: EPILEPSY
     Dosage: DAILY DOSE:200 MG
     Route: 048
  6. MYSTAN [Concomitant]
     Indication: EPILEPSY
     Route: 048
     Dates: start: 20080523, end: 20110815
  7. MYSTAN [Concomitant]
     Indication: EPILEPSY
     Route: 048
     Dates: start: 20110816
  8. LAMICTAL [Concomitant]
     Indication: EPILEPSY
     Dosage: DAILY DOSE: 10 MG
     Route: 048
     Dates: start: 20100723
  9. MUCODYNE DS [Concomitant]
     Indication: LUNG DISORDER
     Dosage: DAILY DOSE: 1.8G
     Route: 048
     Dates: start: 20080711
  10. SELENICA-R [Concomitant]
     Indication: EPILEPSY
     Dosage: DAILY DOSE: 700 MG
     Route: 048
  11. VITAMIN B6 [Concomitant]
  12. THYROTROPIN RELEASING HORMONE [Concomitant]
  13. MERCAZOLE [Concomitant]
     Indication: BASEDOW^S DISEASE
     Dosage: DAILY DOSE: 0.15MG
     Route: 048
  14. MUCOSAL [Concomitant]
     Indication: LUNG DISORDER
     Dosage: DAILY DOSE: 1.8G
     Route: 048
     Dates: start: 20080711
  15. CLAVAMOX [Concomitant]
     Indication: LUNG DISORDER
     Dosage: DAILY DOSE: 1.01 G
     Route: 048
     Dates: start: 20101102

REACTIONS (1)
  - Status epilepticus [Recovered/Resolved]
